FAERS Safety Report 9274612 (Version 1)
Quarter: 2013Q2

REPORT INFORMATION
  Report Type: Spontaneous
  Country: CO (occurrence: CO)
  Receive Date: 20130507
  Receipt Date: 20130507
  Transmission Date: 20140414
  Serious: Yes (Other)
  Sender: FDA-Public Use
  Company Number: CO-PFIZER INC-2013140049

PATIENT
  Age: 16 Year
  Sex: Male
  Weight: 41 kg

DRUGS (1)
  1. GENOTROPIN [Suspect]
     Indication: BODY HEIGHT BELOW NORMAL
     Dosage: 1.5 MG, 1X/DAY
     Route: 058
     Dates: start: 2011

REACTIONS (2)
  - Loss of consciousness [Unknown]
  - Feeling cold [Unknown]
